FAERS Safety Report 6860738-3 (Version None)
Quarter: 2010Q3

REPORT INFORMATION
  Report Type: 
  Country: None (occurrence: None)
  Receive Date: 20100720
  Receipt Date: 20100708
  Transmission Date: 20110219
  Serious: Yes (Other)
  Sender: FDA-Public Use
  Company Number: PHHY2010BR45958

PATIENT
  Age: 78 Year
  Sex: Female

DRUGS (9)
  1. DIOVAN HCT [Suspect]
     Indication: HYPERTENSION
     Dosage: 80/12.5 MG
     Route: 048
  2. DIOVAN HCT [Suspect]
     Dosage: 160/12.5 MG
     Route: 048
  3. HYDERGINE [Suspect]
     Dosage: 4.5 MG, UNK
     Route: 048
  4. LEVOTHYROXINE SODIUM [Concomitant]
     Indication: THYROID DISORDER
     Dosage: 1 TABLET (137 MCG) DAILY
     Route: 048
  5. CALTRATE + D [Concomitant]
     Indication: OSTEOPOROSIS
     Dosage: 1 TABLET DAILY
     Route: 048
  6. ALENDRONATE SODIUM [Concomitant]
     Indication: BLOOD CALCIUM ABNORMAL
     Dosage: 1 TABLET A WEEK
     Route: 048
  7. CREON [Concomitant]
     Indication: PANCREATIC DISORDER
     Dosage: 1 TABLET (25 MG) DAILY
     Route: 048
  8. OMEPRAZOLE [Concomitant]
     Dosage: 1 TABLET DAILY
  9. ANTAK [Concomitant]

REACTIONS (2)
  - HYPERTENSION [None]
  - NERVOUSNESS [None]
